FAERS Safety Report 8039226-7 (Version None)
Quarter: 2012Q1

REPORT INFORMATION
  Report Type: 
  Country: None (occurrence: None)
  Receive Date: 20120111
  Receipt Date: 20111214
  Transmission Date: 20120608
  Serious: No
  Sender: FDA-Public Use
  Company Number: US-AMGEN-USASP2011066770

PATIENT
  Sex: Female

DRUGS (1)
  1. ENBREL [Suspect]
     Indication: RHEUMATOID ARTHRITIS
     Dosage: 50 MG, QWK
     Dates: start: 20111130

REACTIONS (6)
  - OROPHARYNGEAL PAIN [None]
  - DIARRHOEA [None]
  - PALPITATIONS [None]
  - HEADACHE [None]
  - INJECTION SITE PRURITUS [None]
  - INJECTION SITE RASH [None]
